FAERS Safety Report 4579637-5 (Version None)
Quarter: 2005Q1

REPORT INFORMATION
  Report Type: 
  Country: None (occurrence: None)
  Receive Date: 20050214
  Receipt Date: 20030922
  Transmission Date: 20050727
  Serious: Yes (Hospitalization)
  Sender: FDA-Public Use
  Company Number: CH-BRISTOL-MYERS SQUIBB COMPANY-12392353

PATIENT
  Age: 33 Year
  Sex: Female

DRUGS (5)
  1. EFAVIRENZ TABS 600 MG [Suspect]
     Indication: HIV INFECTION
     Dosage: DOSE REDUCED TO 200 MG DAILY ON AN UNSPECIFIED DATE IN 2003
     Route: 048
     Dates: start: 20030624
  2. DIFLUCAN [Interacting]
     Dosage: DOSE REDUCED TO 200 MG ONCE DAILY
     Route: 048
  3. KALETRA [Concomitant]
     Dosage: 400/100 MG
     Dates: start: 20030624, end: 20030912
  4. SULFAMETHOXAZOLE + TRIMETHOPRIM [Concomitant]
     Dosage: 160/800 MG
  5. VIREAD [Concomitant]
     Dates: start: 20030624, end: 20030912

REACTIONS (7)
  - ACUTE PSYCHOSIS [None]
  - DEPRESSION [None]
  - DRUG INTERACTION [None]
  - DRUG LEVEL INCREASED [None]
  - NAUSEA [None]
  - SUICIDAL IDEATION [None]
  - WEIGHT DECREASED [None]
